FAERS Safety Report 21213954 (Version 1)
Quarter: 2022Q3

REPORT INFORMATION
  Report Type: Spontaneous
  Country: US (occurrence: US)
  Receive Date: 20220816
  Receipt Date: 20220816
  Transmission Date: 20221026
  Serious: No
  Sender: FDA-Public Use
  Company Number: US-BRISTOL-MYERS SQUIBB COMPANY-2022-090237

PATIENT
  Age: 85 Year
  Sex: Female
  Weight: 46.3 kg

DRUGS (2)
  1. REBLOZYL [Suspect]
     Active Substance: LUSPATERCEPT-AAMT
     Indication: Anaemia
     Dosage: ROUTE OF ADMINISTRATION: INFUSION
     Route: 065
     Dates: start: 20220210
  2. REVLIMID [Concomitant]
     Active Substance: LENALIDOMIDE
     Indication: Myelofibrosis
     Route: 065

REACTIONS (4)
  - Feeling abnormal [Unknown]
  - Incorrect route of product administration [Unknown]
  - Intentional product use issue [Unknown]
  - Product dose omission issue [Unknown]

NARRATIVE: CASE EVENT DATE: 20220101
